FAERS Safety Report 24286481 (Version 2)
Quarter: 2024Q4

REPORT INFORMATION
  Report Type: Spontaneous
  Country: CZ (occurrence: CZ)
  Receive Date: 20240905
  Receipt Date: 20241127
  Transmission Date: 20250114
  Serious: Yes (Other)
  Sender: VERTEX
  Company Number: CZ-VERTEX PHARMACEUTICALS-2024-013847

PATIENT
  Age: 11 Year
  Sex: Female

DRUGS (15)
  1. ELEXACAFTOR\IVACAFTOR\TEZACAFTOR [Suspect]
     Active Substance: ELEXACAFTOR\IVACAFTOR\TEZACAFTOR
     Indication: Cystic fibrosis
     Dosage: 37.5 IVACAFTOR/ 25 TEZACAFTOR/ 50 ELEXACAFTOR, UNK FREQ
     Route: 048
     Dates: start: 20221003
  2. ELEXACAFTOR\IVACAFTOR\TEZACAFTOR [Suspect]
     Active Substance: ELEXACAFTOR\IVACAFTOR\TEZACAFTOR
     Dosage: 75MG IVACAFTOR/ 50MG TEZACAFTOR/ 100MG ELEXACAFTOR, UNK FREQ
     Route: 048
     Dates: start: 20240610
  3. ELEXACAFTOR\IVACAFTOR\TEZACAFTOR [Suspect]
     Active Substance: ELEXACAFTOR\IVACAFTOR\TEZACAFTOR
     Dosage: 75MG IVACAFTOR/ 50MG TEZACAFTOR/ 100MG ELEXACAFTOR, ONE TAB IN AM
     Route: 048
     Dates: start: 2024
  4. ELEXACAFTOR\IVACAFTOR\TEZACAFTOR [Suspect]
     Active Substance: ELEXACAFTOR\IVACAFTOR\TEZACAFTOR
     Dosage: 37.5 IVACAFTOR/ 25 TEZACAFTOR/ 50 ELEXACAFTOR, UNK FREQ
     Route: 048
     Dates: start: 20240812
  5. KALYDECO [Suspect]
     Active Substance: IVACAFTOR
     Indication: Cystic fibrosis
     Dosage: 75MG, TABLET
     Route: 048
     Dates: start: 20221003
  6. KALYDECO [Suspect]
     Active Substance: IVACAFTOR
     Dosage: 150MG, TABLET
     Route: 048
     Dates: start: 20240610
  7. KALYDECO [Suspect]
     Active Substance: IVACAFTOR
     Dosage: 75 MG IVA
     Route: 048
     Dates: start: 20240812
  8. CREON [Concomitant]
     Active Substance: PANCRELIPASE AMYLASE\PANCRELIPASE LIPASE\PANCRELIPASE PROTEASE
     Dosage: 9 CUPS PER DAY
  9. VITAMIN A [Concomitant]
     Active Substance: VITAMIN A
     Dosage: THREE CUPS WEEKLY
  10. VITAMIN E [Concomitant]
     Active Substance: .ALPHA.-TOCOPHEROL
     Dosage: 1 WEEKLY
  11. VIGANTOL [Concomitant]
     Dosage: 2 GTT DAILY
  12. KANAVIT [Concomitant]
     Dosage: 2 GTT WEEKLY
  13. LACTOBACILLUS REUTERI [Concomitant]
     Active Substance: LACTOBACILLUS REUTERI
  14. ZOLOFT [Concomitant]
     Active Substance: SERTRALINE HYDROCHLORIDE
     Dosage: ONE TAB DAILY
  15. SODIUM CHLORIDE [Concomitant]
     Active Substance: SODIUM CHLORIDE
     Dosage: 2X-3X DAILY

REACTIONS (2)
  - Suicidal ideation [Recovered/Resolved]
  - Anxiety [Recovered/Resolved]

NARRATIVE: CASE EVENT DATE: 20240701
